FAERS Safety Report 5484253-7 (Version None)
Quarter: 2007Q4

REPORT INFORMATION
  Report Type: 
  Country: None (occurrence: None)
  Receive Date: 20071012
  Receipt Date: 20071011
  Transmission Date: 20080405
  Serious: Yes (Hospitalization)
  Sender: FDA-Public Use
  Company Number: US-ROXANE LABORATORIES, INC-2007-DE-05727GD

PATIENT
  Age: 4 Year
  Sex: Male

DRUGS (4)
  1. ACETYLCYSTEINE [Suspect]
     Indication: FIBRINOUS BRONCHITIS
     Route: 055
  2. FLUTICASONE PROPIONATE [Suspect]
     Indication: FIBRINOUS BRONCHITIS
     Route: 055
  3. ALBUTEROL [Suspect]
     Indication: FIBRINOUS BRONCHITIS
     Route: 055
  4. PULMOZYME [Suspect]
     Indication: FIBRINOUS BRONCHITIS

REACTIONS (1)
  - DRUG INEFFECTIVE [None]
